FAERS Safety Report 6862521-1 (Version None)
Quarter: 2010Q3

REPORT INFORMATION
  Report Type: 
  Country: None (occurrence: None)
  Receive Date: 20100721
  Receipt Date: 20100713
  Transmission Date: 20110219
  Serious: Yes (Death)
  Sender: FDA-Public Use
  Company Number: US-ALEXION-A201000511

PATIENT
  Sex: Female

DRUGS (4)
  1. SOLIRIS [Suspect]
     Indication: PAROXYSMAL NOCTURNAL HAEMOGLOBINURIA
     Dosage: 900 MG, Q2WKS
     Route: 042
     Dates: start: 20070101, end: 20100101
  2. ANTIBIOTICS [Concomitant]
  3. VIDAZA [Concomitant]
  4. CHEMOTHERAPEUTICS NOS [Concomitant]
     Indication: MYELODYSPLASTIC SYNDROME

REACTIONS (2)
  - INFECTION [None]
  - PANCYTOPENIA [None]
